FAERS Safety Report 12793661 (Version 1)
Quarter: 2016Q3

REPORT INFORMATION
  Report Type: Spontaneous
  Country: US (occurrence: US)
  Receive Date: 20160929
  Receipt Date: 20160929
  Transmission Date: 20161109
  Serious: No
  Sender: FDA-Public Use
  Company Number: US-JNJFOC-20160909778

PATIENT
  Age: 41 Year
  Sex: Female

DRUGS (3)
  1. INVEGA TRINZA [Suspect]
     Active Substance: PALIPERIDONE PALMITATE
     Indication: BIPOLAR DISORDER
     Route: 030
     Dates: start: 20160708, end: 2016
  2. SEROQUEL [Concomitant]
     Active Substance: QUETIAPINE FUMARATE
     Route: 065
  3. COGENTIN [Concomitant]
     Active Substance: BENZTROPINE MESYLATE
     Route: 065

REACTIONS (4)
  - Off label use [Unknown]
  - Mania [Unknown]
  - Insomnia [Unknown]
  - Product use issue [Unknown]

NARRATIVE: CASE EVENT DATE: 2016
